FAERS Safety Report 10663535 (Version 2)
Quarter: 2015Q1

REPORT INFORMATION
  Report Type: Spontaneous
  Country: FR (occurrence: FR)
  Receive Date: 20141219
  Receipt Date: 20150105
  Transmission Date: 20150720
  Serious: Yes (Other)
  Sender: FDA-Public Use
  Company Number: FR-ABBVIE-14K-056-1322508-00

PATIENT
  Sex: Male
  Weight: 55 kg

DRUGS (3)
  1. CALTRATE VITAMINE D3 [Concomitant]
     Active Substance: CALCIUM CARBONATE\VITAMIN D
     Indication: VITAMIN D DEFICIENCY
     Route: 048
  2. HUMIRA [Suspect]
     Active Substance: ADALIMUMAB
     Indication: CROHN^S DISEASE
     Route: 058
     Dates: start: 20130128, end: 20131125
  3. TAMSULOSINE [Concomitant]
     Active Substance: TAMSULOSIN HYDROCHLORIDE
     Indication: PROSTATISM
     Route: 048

REACTIONS (1)
  - Autoimmune hepatitis [Recovering/Resolving]
